FAERS Safety Report 10174032 (Version 1)
Quarter: 2014Q2

REPORT INFORMATION
  Report Type: Spontaneous
  Country: US (occurrence: US)
  Receive Date: 20140515
  Receipt Date: 20140515
  Transmission Date: 20141212
  Serious: Yes (Other)
  Sender: FDA-Public Use
  Company Number: US-ABBVIE-14P-163-1235969-00

PATIENT
  Sex: 0

DRUGS (4)
  1. CREON [Suspect]
     Indication: PRODUCT USED FOR UNKNOWN INDICATION
  2. PANCREATIC ENZYMES [Concomitant]
     Indication: PRODUCT USED FOR UNKNOWN INDICATION
     Dosage: WITH MEALS AND SNACKS
  3. THYROID [Concomitant]
     Indication: HORMONE REPLACEMENT THERAPY
  4. CALCIUM [Concomitant]
     Indication: PRODUCT USED FOR UNKNOWN INDICATION

REACTIONS (3)
  - Stent placement [Unknown]
  - Malabsorption [Unknown]
  - Pancreatic disorder [Unknown]
